FAERS Safety Report 9080129 (Version 1)
Quarter: 2013Q1

REPORT INFORMATION
  Report Type: Spontaneous
  Country: GR (occurrence: GR)
  Receive Date: 20130130
  Receipt Date: 20130130
  Transmission Date: 20140127
  Serious: Yes (Hospitalization)
  Sender: FDA-Public Use
  Company Number: GR-ABBOTT-13P-066-1040754-00

PATIENT
  Age: 24 Year
  Sex: Male

DRUGS (8)
  1. SODIUM VALPROATE [Suspect]
     Indication: EPILEPSY
  2. KLARICID [Suspect]
     Indication: PYREXIA
  3. KLARICID [Suspect]
     Indication: PLEURISY
  4. RISPERIDONE [Interacting]
     Indication: PSYCHOMOTOR RETARDATION
  5. CEFTRIAXONE [Suspect]
     Indication: PLEURISY
  6. CLINDAMYCIN [Suspect]
     Indication: PLEURISY
  7. PIPERACILLIN + TAZOBACTAM [Suspect]
     Indication: PLEURISY
     Dosage: 4.5X THREE TIMES DAILY
  8. AMIKACIN [Suspect]
     Indication: PLEURISY

REACTIONS (9)
  - Pleural effusion [Unknown]
  - Lupus-like syndrome [Recovered/Resolved]
  - Pyrexia [Unknown]
  - Red blood cell sedimentation rate increased [Unknown]
  - C-reactive protein increased [Unknown]
  - Antinuclear antibody positive [Unknown]
  - Histone antibody positive [Unknown]
  - Drug ineffective [Recovered/Resolved]
  - Drug interaction [Recovered/Resolved]
